FAERS Safety Report 7414268-0 (Version None)
Quarter: 2011Q2

REPORT INFORMATION
  Report Type: 
  Country: None (occurrence: None)
  Receive Date: 20110414
  Receipt Date: 20110331
  Transmission Date: 20111010
  Serious: Yes (Death, Life-Threatening, Hospitalization, Other)
  Sender: FDA-Public Use
  Company Number: AU-CELGENEUS-008-21880-11033537

PATIENT

DRUGS (6)
  1. BORTEZOMIB [Concomitant]
     Indication: MULTIPLE MYELOMA
     Route: 065
  2. REVLIMID [Suspect]
     Indication: MULTIPLE MYELOMA
     Route: 048
  3. THALIDOMIDE [Suspect]
     Indication: MULTIPLE MYELOMA
     Route: 048
  4. IMMUNE GLOBULIN INTRAVENOUS (HUMAN) [Concomitant]
     Route: 051
  5. PREDNISOLONE [Concomitant]
     Indication: IMMUNOMODULATORY THERAPY
     Route: 048
  6. DEXAMETHASONE [Concomitant]
     Indication: IMMUNOMODULATORY THERAPY
     Dosage: 20 MG - 40 MG
     Route: 048

REACTIONS (16)
  - SEPSIS [None]
  - CELLULITIS [None]
  - UPPER RESPIRATORY TRACT INFECTION [None]
  - LOWER RESPIRATORY TRACT INFECTION [None]
  - MULTIPLE MYELOMA [None]
  - MULTI-ORGAN FAILURE [None]
  - GASTROINTESTINAL INFECTION [None]
  - URINARY TRACT INFECTION [None]
  - CARDIOPULMONARY FAILURE [None]
  - PNEUMONIA [None]
  - ABSCESS [None]
  - LEUKAEMIA PLASMACYTIC [None]
  - CHOLECYSTITIS [None]
  - HERPES VIRUS INFECTION [None]
  - HERPES ZOSTER [None]
  - ORAL CANDIDIASIS [None]
